FAERS Safety Report 13010408 (Version 1)
Quarter: 2016Q4

REPORT INFORMATION
  Report Type: Spontaneous
  Country: DE (occurrence: DE)
  Receive Date: 20161208
  Receipt Date: 20161208
  Transmission Date: 20170207
  Serious: Yes (Other)
  Sender: FDA-Public Use
  Company Number: GXKR2016DE005611

PATIENT
  Age: 13 Year
  Sex: Female

DRUGS (1)
  1. FLUOXETINE [Suspect]
     Active Substance: FLUOXETINE HYDROCHLORIDE
     Indication: SELECTIVE MUTISM
     Dosage: UNK UKN, UNK
     Route: 048
     Dates: start: 2014

REACTIONS (5)
  - Obsessive-compulsive disorder [Unknown]
  - Aggression [Unknown]
  - Personality change [Unknown]
  - Crying [Unknown]
  - Anxiety disorder [Unknown]
